FAERS Safety Report 22397171 (Version 1)
Quarter: 2023Q2

REPORT INFORMATION
  Report Type: Other
  Country: US (occurrence: None)
  Receive Date: 20230602
  Receipt Date: 20230602
  Transmission Date: 20230721
  Serious: No
  Sender: FDA-Public Use
  Company Number: US-ROCHE-3358118

PATIENT
  Age: 70 Year
  Sex: Female
  Weight: 89.438 kg

DRUGS (2)
  1. OCREVUS [Suspect]
     Active Substance: OCRELIZUMAB
     Indication: Multiple sclerosis
     Dosage: DOT: 10-NOV-2022
     Route: 042
     Dates: start: 202011
  2. BACLOFEN [Concomitant]
     Active Substance: BACLOFEN

REACTIONS (1)
  - COVID-19 [Recovered/Resolved]

NARRATIVE: CASE EVENT DATE: 20220101
